FAERS Safety Report 5715965-5 (Version None)
Quarter: 2008Q2

REPORT INFORMATION
  Report Type: 
  Country: None (occurrence: None)
  Receive Date: 20080424
  Receipt Date: 20080418
  Transmission Date: 20081010
  Serious: Yes (Other)
  Sender: FDA-Public Use
  Company Number: BR-ASTRAZENECA-2006UW17967

PATIENT
  Age: 56 Year
  Sex: Female
  Weight: 54 kg

DRUGS (4)
  1. ARIMIDEX [Suspect]
     Indication: BREAST CANCER
     Route: 048
     Dates: start: 20060814
  2. PROZAC [Concomitant]
  3. PROPRANOLOL [Concomitant]
     Indication: ARRHYTHMIA
  4. NOLVADEX [Concomitant]
     Route: 048

REACTIONS (5)
  - ARTHRALGIA [None]
  - BACK PAIN [None]
  - BLOOD CHOLESTEROL INCREASED [None]
  - PAIN IN EXTREMITY [None]
  - SKIN NODULE [None]
